FAERS Safety Report 11258184 (Version 1)
Quarter: 2015Q3

REPORT INFORMATION
  Report Type: Spontaneous
  Country: US (occurrence: None)
  Receive Date: 20150706
  Receipt Date: 20150706
  Transmission Date: 20151125
  Serious: Yes (Hospitalization)
  Sender: FDA-Public Use
  Company Number: 2015COV00066

PATIENT
  Age: 49 Year
  Sex: Female
  Weight: 90.7 kg

DRUGS (5)
  1. TRANYLCYPROMINE (TRANYLCYPROMINE) UNKNOWN [Suspect]
     Active Substance: TRANYLCYPROMINE
     Indication: DEPRESSION
     Route: 048
  2. LISINOPRIL. [Concomitant]
     Active Substance: LISINOPRIL
  3. NOVOCAINE [Suspect]
     Active Substance: PROCAINE
     Dates: start: 2014, end: 2014
  4. PARNATE [Suspect]
     Active Substance: TRANYLCYPROMINE SULFATE
     Indication: DEPRESSION
     Route: 048
     Dates: start: 2000
  5. LIDOCAINE WITH NOREPHINEPHRINE [Suspect]
     Active Substance: LIDOCAINE HYDROCHLORIDE\NOREPINEPHRINE BITARTRATE
     Indication: DENTAL CARE
     Dates: start: 2014, end: 2014

REACTIONS (6)
  - Chest discomfort [None]
  - Anxiety [None]
  - Dental care [None]
  - Drug interaction [None]
  - Depression [None]
  - Hypertension [None]

NARRATIVE: CASE EVENT DATE: 2014
